FAERS Safety Report 5457977-5 (Version None)
Quarter: 2007Q3

REPORT INFORMATION
  Report Type: 
  Country: None (occurrence: None)
  Receive Date: 20070917
  Receipt Date: 20070909
  Transmission Date: 20080115
  Serious: Yes (Other)
  Sender: FDA-Public Use
  Company Number: CHPA2007US09498

PATIENT
  Age: 52 Year
  Sex: Female

DRUGS (1)
  1. MAALOX MS TOTAL STOMACH RELIEF (NCH)(BISMUTH SUBSALICYLATE) SUSPENSION [Suspect]
     Dosage: FINISHED 1 OUNCE BOTTLE IN A DAY, ORAL
     Route: 048
     Dates: start: 20070907, end: 20070908

REACTIONS (1)
  - VAGINAL HAEMORRHAGE [None]
